FAERS Safety Report 12179599 (Version 4)
Quarter: 2018Q1

REPORT INFORMATION
  Report Type: Spontaneous
  Country: US (occurrence: US)
  Receive Date: 20160315
  Receipt Date: 20180111
  Transmission Date: 20180508
  Serious: Yes (Hospitalization, Disabling, Other)
  Sender: FDA-Public Use
  Company Number: US-009507513-1603USA006404

PATIENT
  Sex: Female
  Weight: 83.9 kg

DRUGS (1)
  1. NUVARING [Suspect]
     Active Substance: ETHINYL ESTRADIOL\ETONOGESTREL
     Indication: CONTRACEPTION
     Dosage: 0.12 MG-0.015 MG/24 HR, X 3 WEEKS
     Route: 067
     Dates: start: 201303, end: 20141004

REACTIONS (22)
  - Furuncle [Unknown]
  - Tonsillectomy [Unknown]
  - Pneumonia [Unknown]
  - Female sterilisation [Unknown]
  - Sepsis [Unknown]
  - Hyponatraemia [Unknown]
  - Diarrhoea [Unknown]
  - Weight increased [Recovered/Resolved]
  - Abortion spontaneous [Unknown]
  - Systemic inflammatory response syndrome [Unknown]
  - Breast pain [Unknown]
  - Lymphadenopathy mediastinal [Unknown]
  - Hepatic steatosis [Unknown]
  - Lactic acidosis [Unknown]
  - Hyperlipidaemia [Unknown]
  - Musculoskeletal pain [Unknown]
  - Maternal exposure before pregnancy [Unknown]
  - Pulmonary embolism [Unknown]
  - Fatigue [Unknown]
  - Pollakiuria [Unknown]
  - Migraine [Unknown]
  - Chest pain [Unknown]

NARRATIVE: CASE EVENT DATE: 2014
